FAERS Safety Report 18579052 (Version 2)
Quarter: 2021Q1

REPORT INFORMATION
  Report Type: Spontaneous
  Country: US (occurrence: US)
  Receive Date: 20201204
  Receipt Date: 20210127
  Transmission Date: 20210419
  Serious: Yes (Other)
  Sender: FDA-Public Use
  Company Number: US-BAUSCH-BL-2020-034554

PATIENT
  Age: 82 Year
  Sex: Male

DRUGS (1)
  1. GENTAMYCIN [Suspect]
     Active Substance: GENTAMICIN
     Indication: PYELONEPHRITIS ACUTE
     Route: 065

REACTIONS (1)
  - Renal tubular necrosis [Recovering/Resolving]
